FAERS Safety Report 23936685 (Version 1)
Quarter: 2024Q2

REPORT INFORMATION
  Report Type: Spontaneous
  Country: US (occurrence: None)
  Receive Date: 20240603
  Receipt Date: 20240603
  Transmission Date: 20240716
  Serious: No
  Sender: FDA-Public Use
  Company Number: None

PATIENT
  Age: 15 Year
  Sex: Male

DRUGS (1)
  1. LITFULO [Suspect]
     Active Substance: RITLECITINIB TOSYLATE
     Indication: Alopecia areata
     Dosage: FREQUENCY : DAILY;?
     Route: 048
     Dates: start: 20240130

REACTIONS (2)
  - Fatigue [None]
  - Somnolence [None]

NARRATIVE: CASE EVENT DATE: 20240603
